FAERS Safety Report 9308764 (Version 1)
Quarter: 2013Q2

REPORT INFORMATION
  Report Type: Spontaneous
  Country: US (occurrence: US)
  Receive Date: 20130524
  Receipt Date: 20130524
  Transmission Date: 20140414
  Serious: No
  Sender: FDA-Public Use
  Company Number: US-NOVEN-13US006214

PATIENT
  Sex: Female

DRUGS (1)
  1. MINIVELLE [Suspect]
     Indication: BLOOD OESTROGEN DECREASED
     Dosage: 0.1 MG, UNK
     Route: 062
     Dates: start: 201301

REACTIONS (3)
  - Application site swelling [Recovered/Resolved]
  - Application site erythema [Recovered/Resolved]
  - Off label use [Recovered/Resolved]
